FAERS Safety Report 8251932-8 (Version None)
Quarter: 2012Q2

REPORT INFORMATION
  Report Type: 
  Country: None (occurrence: None)
  Receive Date: 20120402
  Receipt Date: 20120327
  Transmission Date: 20120825
  Serious: Yes (Death, Life-Threatening, Hospitalization)
  Sender: FDA-Public Use
  Company Number: US-CELGENEUS-163-21880-12023111

PATIENT
  Sex: Female
  Weight: 59.474 kg

DRUGS (10)
  1. AMBIEN [Concomitant]
     Dosage: 100 MILLIGRAM
     Route: 065
  2. FLEXERIL [Concomitant]
     Dosage: 10 MILLIGRAM
     Route: 065
  3. COLACE [Concomitant]
     Dosage: 100 MILLIGRAM
     Route: 065
  4. REVLIMID [Suspect]
     Indication: MYELODYSPLASTIC SYNDROME
     Dosage: 5 MILLIGRAM
     Route: 048
     Dates: start: 20111221, end: 20120221
  5. COMPAZINE [Concomitant]
     Dosage: 100 MILLIGRAM
     Route: 065
  6. HYDROMORPHONE HCL [Concomitant]
     Dosage: 4 MILLIGRAM
     Route: 065
  7. MARINOL [Concomitant]
     Dosage: 2.5 MILLIGRAM
     Route: 065
  8. ARTHROTEC [Concomitant]
     Dosage: 75-200MG-MCG
     Route: 065
  9. ZYLOPRIM [Concomitant]
     Dosage: 300 MILLIGRAM
     Route: 065
  10. FENTANYL [Concomitant]
     Dosage: 75 MGC/HR
     Route: 065

REACTIONS (2)
  - DEEP VEIN THROMBOSIS [None]
  - DEATH [None]
